FAERS Safety Report 4328373-9 (Version None)
Quarter: 2004Q1

REPORT INFORMATION
  Report Type: 
  Country: None (occurrence: None)
  Receive Date: 20040331
  Receipt Date: 20040323
  Transmission Date: 20041129
  Serious: Yes (Other)
  Sender: FDA-Public Use
  Company Number: PHEH2004US03355

PATIENT
  Age: 48 Year
  Sex: Female

DRUGS (6)
  1. CLOZARIL [Suspect]
     Indication: SCHIZOPHRENIA
     Dosage: 250 MG/DAY
     Route: 048
     Dates: end: 20040323
  2. DEPAKOTE [Concomitant]
  3. ZOLOFT [Concomitant]
  4. TOPROL-XL [Concomitant]
  5. FERROUS SULFATE TAB [Concomitant]
  6. KETOCONAZOLE [Concomitant]

REACTIONS (8)
  - ANKLE OPERATION [None]
  - BLOOD PRESSURE INCREASED [None]
  - CHOLECYSTECTOMY [None]
  - CONSTIPATION [None]
  - DEAFNESS [None]
  - HYPERTENSION [None]
  - NEUTROPENIA [None]
  - NEUTROPHIL PERCENTAGE DECREASED [None]
